FAERS Safety Report 9621051 (Version 1)
Quarter: 2013Q4

REPORT INFORMATION
  Report Type: Spontaneous
  Country: US (occurrence: US)
  Receive Date: 20131015
  Receipt Date: 20131015
  Transmission Date: 20140711
  Serious: No
  Sender: FDA-Public Use
  Company Number: US-009507513-1310USA005189

PATIENT
  Sex: Female

DRUGS (4)
  1. PROVENTIL [Suspect]
     Indication: ASTHMA
     Dosage: 90 MCG /TWO PUFFS, EVERY FOUR TO SIX HOURS
     Route: 055
  2. ADVAIR [Concomitant]
     Dosage: UNK
  3. CLARITIN [Concomitant]
     Dosage: UNK
  4. XANAX [Concomitant]
     Dosage: UNK

REACTIONS (4)
  - Dyspnoea [Unknown]
  - Stress [Unknown]
  - Drug dose omission [Unknown]
  - Product quality issue [Unknown]
